FAERS Safety Report 4851264-1 (Version None)
Quarter: 2005Q4

REPORT INFORMATION
  Report Type: 
  Country: None (occurrence: None)
  Receive Date: 20051208
  Receipt Date: 20051130
  Transmission Date: 20060501
  Serious: Yes (Hospitalization)
  Sender: FDA-Public Use
  Company Number: 005963

PATIENT
  Age: 75 Year
  Sex: Male
  Weight: 86.6 kg

DRUGS (10)
  1. WARFARIN SODIUM [Suspect]
     Indication: ATRIAL FIBRILLATION
     Dosage: 5 MG, QD, ORAL
     Route: 048
     Dates: start: 19870101, end: 20051101
  2. WARFARIN SODIUM [Suspect]
     Indication: ATRIAL FIBRILLATION
     Dosage: 4 MG, QD, ORAL
     Route: 048
     Dates: start: 19870101, end: 20051101
  3. WARFARIN SODIUM [Suspect]
     Indication: ATRIAL FIBRILLATION
     Dosage: 3 TABLET, QD, ORAL
     Route: 048
     Dates: start: 20051101
  4. COZAAR [Concomitant]
  5. LANOXIN [Concomitant]
  6. LOVASTATIN [Concomitant]
  7. DILANTIN [Concomitant]
  8. COREG [Concomitant]
  9. LASIX [Concomitant]
  10. POTASSIUM CHLORIDE [Concomitant]

REACTIONS (6)
  - CORONARY ARTERY OCCLUSION [None]
  - HERNIA [None]
  - INTERNATIONAL NORMALISED RATIO DECREASED [None]
  - MITRAL VALVE DISEASE [None]
  - PROSTATE CANCER RECURRENT [None]
  - PROTHROMBIN TIME SHORTENED [None]
